FAERS Safety Report 7395087-0 (Version None)
Quarter: 2011Q2

REPORT INFORMATION
  Report Type: 
  Country: None (occurrence: None)
  Receive Date: 20110405
  Receipt Date: 20110331
  Transmission Date: 20111010
  Serious: Yes (Hospitalization)
  Sender: FDA-Public Use
  Company Number: SE-PFIZER INC-2004095957

PATIENT
  Age: 60 Year
  Sex: Male

DRUGS (4)
  1. DIFLUCAN [Suspect]
     Indication: FUNGAL INFECTION
     Dosage: UNK
     Route: 048
     Dates: start: 20040426, end: 20040430
  2. CORDARONE [Suspect]
     Indication: CARDIAC DISORDER
     Dosage: 100 MG, 1X/DAY
     Route: 048
     Dates: start: 19900101, end: 20040503
  3. KAVEPENIN [Suspect]
     Indication: NASOPHARYNGITIS
     Route: 048
     Dates: start: 20040416, end: 20040418
  4. SELOKEN [Suspect]
     Indication: CARDIAC DISORDER
     Dosage: 100 MG, UNK
     Route: 048
     Dates: start: 19900101

REACTIONS (3)
  - RHABDOMYOLYSIS [None]
  - NASOPHARYNGITIS [None]
  - DERMATOMYOSITIS [None]
